FAERS Safety Report 6527775-X (Version None)
Quarter: 2009Q4

REPORT INFORMATION
  Report Type: 
  Country: None (occurrence: None)
  Receive Date: 20091231
  Receipt Date: 20091218
  Transmission Date: 20100525
  Serious: Yes (Hospitalization)
  Sender: FDA-Public Use
  Company Number: 8033874

PATIENT
  Sex: Female
  Weight: 55 kg

DRUGS (2)
  1. CERTOLIZUMAB PEGOL (CDP870) [Suspect]
     Indication: RHEUMATOID ARTHRITIS
     Dosage: (400 MG, ONCE MONTHLY SUBCUTANEOUS), (400 MG , DOSE FREQ. : ONCE MONTHLY SUBCUTANEOUS)
     Route: 058
     Dates: start: 20040602, end: 20080519
  2. CERTOLIZUMAB PEGOL (CDP870) [Suspect]
     Indication: RHEUMATOID ARTHRITIS
     Dosage: (400 MG, ONCE MONTHLY SUBCUTANEOUS), (400 MG , DOSE FREQ. : ONCE MONTHLY SUBCUTANEOUS)
     Route: 058
     Dates: start: 20031016

REACTIONS (6)
  - BLOOD CREATININE INCREASED [None]
  - CALCULUS URETERIC [None]
  - CULTURE URINE POSITIVE [None]
  - ESCHERICHIA URINARY TRACT INFECTION [None]
  - HYDRONEPHROSIS [None]
  - PYELONEPHRITIS [None]
